FAERS Safety Report 24197251 (Version 2)
Quarter: 2024Q3

REPORT INFORMATION
  Report Type: Report from Study
  Country: US (occurrence: US)
  Receive Date: 20240810
  Receipt Date: 20240816
  Transmission Date: 20241016
  Serious: Yes (Other)
  Sender: AMGEN
  Company Number: US-AMGEN-USASL2024153786

PATIENT
  Age: 56 Year
  Sex: Female
  Weight: 111.57 kg

DRUGS (5)
  1. UPLIZNA [Suspect]
     Active Substance: INEBILIZUMAB-CDON
     Indication: Neuromyelitis optica spectrum disorder
     Dosage: 300 MILLIGRAM, Q6MO
     Route: 042
     Dates: start: 20220601, end: 20240612
  2. VITAMIN B12 [Concomitant]
     Active Substance: CYANOCOBALAMIN
     Dosage: UNK
  3. AMLODIPINE [Concomitant]
     Active Substance: AMLODIPINE BESYLATE
     Dosage: UNK
     Dates: start: 20230501
  4. DIVALPROEX SODIUM [Concomitant]
     Active Substance: DIVALPROEX SODIUM
     Dosage: UNK
     Dates: start: 20230830
  5. NORTRIPTYLINE [Concomitant]
     Active Substance: NORTRIPTYLINE
     Dosage: UNK
     Dates: start: 20221111

REACTIONS (8)
  - Neuromyelitis optica spectrum disorder [Recovered/Resolved]
  - Arthralgia [Unknown]
  - Gingivitis [Unknown]
  - Patella fracture [Unknown]
  - Spinal osteoarthritis [Not Recovered/Not Resolved]
  - Adrenal mass [Unknown]
  - Hypertension [Unknown]
  - Migraine [Unknown]

NARRATIVE: CASE EVENT DATE: 20220101
